FAERS Safety Report 5732061-1 (Version None)
Quarter: 2008Q2

REPORT INFORMATION
  Report Type: 
  Country: None (occurrence: None)
  Receive Date: 20080508
  Receipt Date: 20080425
  Transmission Date: 20081010
  Serious: Yes (Hospitalization, Other)
  Sender: FDA-Public Use
  Company Number: PHHY2008JP03609

PATIENT
  Age: 48 Year
  Sex: Female

DRUGS (1)
  1. GLEEVEC [Suspect]
     Indication: CHRONIC MYELOID LEUKAEMIA
     Dosage: UNK, UNK
     Route: 048
     Dates: start: 20040801

REACTIONS (8)
  - ASCITES [None]
  - CASTLEMAN'S DISEASE [None]
  - HYPERGAMMAGLOBULINAEMIA [None]
  - HYPOALBUMINAEMIA [None]
  - INTERLEUKIN LEVEL INCREASED [None]
  - LYMPHADENITIS [None]
  - LYMPHADENOPATHY [None]
  - OEDEMA PERIPHERAL [None]
